FAERS Safety Report 12669846 (Version 1)
Quarter: 2016Q3

REPORT INFORMATION
  Report Type: Report from Study
  Country: BR (occurrence: BR)
  Receive Date: 20160819
  Receipt Date: 20160819
  Transmission Date: 20161109
  Serious: Yes (Other)
  Sender: FDA-Public Use
  Company Number: PHHY2016BR113653

PATIENT
  Age: 76 Year
  Sex: Male

DRUGS (5)
  1. EXELON PATCH [Suspect]
     Active Substance: RIVASTIGMINE
     Dosage: PATCH 9 CM2, QD
     Route: 062
  2. EXELON PATCH [Suspect]
     Active Substance: RIVASTIGMINE
     Dosage: PATCH 15 CM2, QD
     Route: 062
  3. EXELON PATCH [Suspect]
     Active Substance: RIVASTIGMINE
     Indication: MIXED DEMENTIA
     Dosage: PATCH 5 CM2, QD
     Route: 062
  4. EXELON PATCH [Suspect]
     Active Substance: RIVASTIGMINE
     Dosage: PATCH 7 CM2, QD
     Route: 062
  5. EXELON PATCH [Suspect]
     Active Substance: RIVASTIGMINE
     Dosage: PATCH 12 CM2, QD
     Route: 062

REACTIONS (7)
  - Cerebrovascular accident [Unknown]
  - Dementia [Unknown]
  - Disease progression [Unknown]
  - Memory impairment [Unknown]
  - Product use issue [Unknown]
  - Gait disturbance [Unknown]
  - Mixed dementia [Unknown]

NARRATIVE: CASE EVENT DATE: 2011
